FAERS Safety Report 4450306-5 (Version None)
Quarter: 2004Q3

REPORT INFORMATION
  Report Type: 
  Country: None (occurrence: None)
  Receive Date: 20040914
  Receipt Date: 20040830
  Transmission Date: 20050211
  Serious: Yes (Life-Threatening)
  Sender: FDA-Public Use
  Company Number: 04P-129-0271940-00

PATIENT
  Age: 2 Year
  Sex: Female
  Weight: 12 kg

DRUGS (3)
  1. BIAXIN [Suspect]
     Indication: PHARYNGITIS
     Dosage: 250 MG, 1 IN 1 D, ORAL
     Route: 048
     Dates: start: 20040803, end: 20040804
  2. PARACETAMOL [Concomitant]
  3. AZITHROMYCIN [Concomitant]

REACTIONS (3)
  - ABDOMINAL PAIN [None]
  - ABDOMINAL RIGIDITY [None]
  - DIARRHOEA [None]
